FAERS Safety Report 9403796 (Version 1)
Quarter: 2013Q3

REPORT INFORMATION
  Report Type: Spontaneous
  Country: JP (occurrence: None)
  Receive Date: 20130712
  Receipt Date: 20130712
  Transmission Date: 20140515
  Serious: Yes (Hospitalization)
  Sender: FDA-Public Use
  Company Number: DSJ-2013-15420

PATIENT
  Age: 70 Year
  Sex: Female

DRUGS (5)
  1. OLMETEC (OLMESARTAN MEDOXOMIL) (TABLET) (OLMESARTAN MEDOXOMIL) [Suspect]
     Indication: HYPERTENSION
     Route: 048
     Dates: start: 20121121, end: 20130115
  2. METGLUCO (METFORMIN HYDROCHLORIDE) (METFORMIN HYDROCHLORIDE) [Concomitant]
  3. NOVORAPID 30 MIX (INSULIN ASPART) (INSULIN ASPART) [Concomitant]
  4. SENNOSIDE (SENNOSIDE A+B) (SENNOSIDE A+B) [Concomitant]
  5. RINBETA (BETAMETHASONE SODIUM PHOSPHATE) (BETAMETHASONE SODIUM PHOSPHATE) [Concomitant]

REACTIONS (3)
  - Cataract [None]
  - Condition aggravated [None]
  - Blood pressure increased [None]
